FAERS Safety Report 6810943-7 (Version None)
Quarter: 2010Q2

REPORT INFORMATION
  Report Type: 
  Country: None (occurrence: None)
  Receive Date: 20100630
  Receipt Date: 20081022
  Transmission Date: 20101027
  Serious: No
  Sender: FDA-Public Use
  Company Number: US-PFIZER INC-2008082096

PATIENT
  Sex: Female
  Weight: 69.5 kg

DRUGS (7)
  1. ESTRING [Suspect]
     Indication: URINARY TRACT DISORDER
     Dates: start: 20050801, end: 20080101
  2. ESTRING [Suspect]
     Indication: ATROPHIC VULVOVAGINITIS
  3. AVALIDE [Concomitant]
  4. PLAQUENIL [Concomitant]
  5. PROTONIX [Concomitant]
  6. PREMARIN [Concomitant]
  7. PAMELOR [Concomitant]

REACTIONS (4)
  - POLLAKIURIA [None]
  - VAGINAL INFECTION [None]
  - VULVOVAGINAL DISCOMFORT [None]
  - VULVOVAGINAL ULCERATION [None]
